FAERS Safety Report 9135041 (Version 4)
Quarter: 2013Q4

REPORT INFORMATION
  Report Type: Spontaneous
  Country: BR (occurrence: BR)
  Receive Date: 20130304
  Receipt Date: 20131011
  Transmission Date: 20140711
  Serious: Yes (Hospitalization, Other)
  Sender: FDA-Public Use
  Company Number: BR-009507513-1208BRA011453

PATIENT
  Age: 60 Year
  Sex: Male
  Weight: 126 kg

DRUGS (10)
  1. VICTRELIS [Suspect]
     Indication: HEPATITIS C
     Dosage: 800 MG, Q8H
     Route: 048
     Dates: start: 20120712, end: 20130312
  2. RIBAVIRIN [Suspect]
     Indication: HEPATITIS C
     Dosage: UNK
     Route: 048
  3. PEGASYS [Concomitant]
     Indication: HEPATITIS C
     Dosage: 180 MICROGRAM, QW
     Route: 058
     Dates: start: 20120612, end: 20130312
  4. RIBAVIRIN [Concomitant]
     Indication: HEPATITIS C
     Dosage: 750 MG, QAM
     Route: 048
     Dates: start: 20120612, end: 201302
  5. RIBAVIRIN [Concomitant]
     Dosage: 500 MG, QPM
     Route: 048
     Dates: start: 20120612, end: 201302
  6. RIBAVIRIN [Concomitant]
     Dosage: 500 MG, BID
     Dates: start: 20130209, end: 20130312
  7. ATENOLOL [Concomitant]
     Indication: HYPERTENSION
     Dosage: 100 MG, QD
     Route: 048
     Dates: start: 2002
  8. ENAPROTEC [Concomitant]
     Indication: HYPERTENSION
     Dosage: 20 MG, QD
     Route: 048
     Dates: start: 2002
  9. AMLOVASC [Concomitant]
     Indication: HYPERTENSION
     Dosage: 5 MG, QD
     Route: 048
     Dates: start: 2002
  10. INTERFERON (UNSPECIFIED) [Concomitant]
     Dosage: UNK
     Dates: start: 2005

REACTIONS (16)
  - Pneumonia [Recovering/Resolving]
  - Pulmonary embolism [Recovering/Resolving]
  - Pleural effusion [Recovering/Resolving]
  - Skin disorder [Recovering/Resolving]
  - Tremor [Not Recovered/Not Resolved]
  - Muscular weakness [Not Recovered/Not Resolved]
  - Muscular weakness [Not Recovered/Not Resolved]
  - Pruritus generalised [Recovered/Resolved]
  - Weight decreased [Recovering/Resolving]
  - White blood cell count decreased [Unknown]
  - Dysgeusia [Unknown]
  - Haemoglobin decreased [Recovered/Resolved]
  - Dysgeusia [Recovered/Resolved]
  - Asthenia [Not Recovered/Not Resolved]
  - Anaemia [Recovered/Resolved]
  - Platelet count decreased [Recovered/Resolved]
